FAERS Safety Report 19794800 (Version 3)
Quarter: 2021Q4

REPORT INFORMATION
  Report Type: Spontaneous
  Country: US (occurrence: US)
  Receive Date: 20210906
  Receipt Date: 20211216
  Transmission Date: 20220303
  Serious: Yes (Death, Hospitalization, Other)
  Sender: FDA-Public Use
  Company Number: US-BRISTOL-MYERS SQUIBB COMPANY-BMS-2021-089276

PATIENT
  Age: 73 Year
  Sex: Male
  Weight: 59.42 kg

DRUGS (6)
  1. OPDIVO [Suspect]
     Active Substance: NIVOLUMAB
     Indication: Lung neoplasm malignant
     Dosage: UNK
     Route: 042
     Dates: end: 202107
  2. INSULIN NOS [Concomitant]
     Active Substance: INSULIN NOS
     Indication: Product used for unknown indication
     Dosage: UNK
     Route: 065
  3. ACETAMINOPHEN\HYDROCODONE [Concomitant]
     Active Substance: ACETAMINOPHEN\HYDROCODONE
     Indication: Pain
     Dosage: 5/325MG PRN
     Route: 065
  4. FAMOTIDINE [Concomitant]
     Active Substance: FAMOTIDINE
     Indication: Product used for unknown indication
     Dosage: 20 MILLIGRAM, Q12H
     Route: 048
  5. LEVOFLOXACIN [Concomitant]
     Active Substance: LEVOFLOXACIN
     Indication: Thrombosis prophylaxis
     Dosage: 40 MILLIGRAM Q 24 HRS
     Route: 058
  6. TYLENOL [Concomitant]
     Active Substance: ACETAMINOPHEN
     Indication: Pain
     Dosage: UNK, PRN
     Route: 065

REACTIONS (5)
  - Acute respiratory failure [Fatal]
  - Pneumonia [Fatal]
  - Lung neoplasm malignant [Fatal]
  - Chronic obstructive pulmonary disease [Unknown]
  - Pneumonitis [Not Recovered/Not Resolved]

NARRATIVE: CASE EVENT DATE: 20210717
